FAERS Safety Report 14249164 (Version 1)
Quarter: 2017Q4

REPORT INFORMATION
  Report Type: Report from Study
  Country: US (occurrence: US)
  Receive Date: 20171204
  Receipt Date: 20171204
  Transmission Date: 20180321
  Serious: Yes (Other)
  Sender: FDA-Public Use
  Company Number: US-ACTELION-A-NJ2017-163330

PATIENT
  Age: 71 Year
  Sex: Male
  Weight: 124.72 kg

DRUGS (4)
  1. SILDENAFIL CITRATE. [Concomitant]
     Active Substance: SILDENAFIL CITRATE
  2. OPSUMIT [Suspect]
     Active Substance: MACITENTAN
     Indication: PULMONARY ARTERIAL HYPERTENSION
     Dosage: 10 MG, QD
     Route: 048
     Dates: start: 201709, end: 201711
  3. WARFARIN [Concomitant]
     Active Substance: WARFARIN
  4. BUMEX [Suspect]
     Active Substance: BUMETANIDE
     Indication: FLUID RETENTION
     Dosage: UNK
     Route: 065
     Dates: start: 201711

REACTIONS (4)
  - Lymphoma [Not Recovered/Not Resolved]
  - Fluid retention [Unknown]
  - Swelling [Unknown]
  - Renal impairment [Not Recovered/Not Resolved]

NARRATIVE: CASE EVENT DATE: 201709
